FAERS Safety Report 5136229-7 (Version None)
Quarter: 2006Q4

REPORT INFORMATION
  Report Type: 
  Country: None (occurrence: None)
  Receive Date: 20061027
  Receipt Date: 20061017
  Transmission Date: 20070319
  Serious: Yes (Other)
  Sender: FDA-Public Use
  Company Number: BR-ROCHE-467862

PATIENT
  Age: 26 Year
  Sex: Female

DRUGS (2)
  1. ROACUTAN [Suspect]
     Indication: DRUG USE FOR UNKNOWN INDICATION
     Dosage: IRREGULARLY.
     Route: 048
     Dates: start: 20060815, end: 20061015
  2. ROACUTAN [Suspect]
     Route: 048
     Dates: start: 20060115, end: 20060715

REACTIONS (2)
  - NO ADVERSE EFFECT [None]
  - PREGNANCY [None]
